FAERS Safety Report 14691909 (Version 1)
Quarter: 2018Q1

REPORT INFORMATION
  Report Type: Spontaneous
  Country: US (occurrence: US)
  Receive Date: 20180329
  Receipt Date: 20180329
  Transmission Date: 20180509
  Serious: No
  Sender: FDA-Public Use
  Company Number: US-TRIS PHARMA, INC-2018TRISPO00177

PATIENT

DRUGS (2)
  1. KARBINAL ER [Suspect]
     Active Substance: CARBINOXAMINE MALEATE
     Indication: RHINORRHOEA
     Dosage: UNK
     Route: 065
  2. KARBINAL ER [Suspect]
     Active Substance: CARBINOXAMINE MALEATE
     Indication: EYE DISCHARGE

REACTIONS (1)
  - Abnormal dreams [Unknown]
